FAERS Safety Report 25357653 (Version 1)
Quarter: 2025Q2

REPORT INFORMATION
  Report Type: Spontaneous
  Country: HR (occurrence: HR)
  Receive Date: 20250526
  Receipt Date: 20250526
  Transmission Date: 20250717
  Serious: Yes (Disabling, Other)
  Sender: TEVA
  Company Number: HR-TEVA-VS-3334246

PATIENT
  Age: 54 Year
  Sex: Female

DRUGS (7)
  1. AJOVY [Suspect]
     Active Substance: FREMANEZUMAB-VFRM
     Indication: Migraine prophylaxis
     Route: 065
     Dates: start: 20240603, end: 20240713
  2. EUTHYROX [Concomitant]
     Active Substance: LEVOTHYROXINE SODIUM
     Indication: Anxiety
  3. Plivadon [Concomitant]
     Indication: Headache
  4. Ketonal [Concomitant]
     Indication: Vomiting
  5. RELPAX [Concomitant]
     Active Substance: ELETRIPTAN HYDROBROMIDE
     Indication: Migraine
  6. DEXKETOPROFEN TROMETAMOL [Concomitant]
     Active Substance: DEXKETOPROFEN TROMETAMOL
     Indication: Headache
  7. Prazine [Concomitant]
     Indication: Drug withdrawal syndrome neonatal

REACTIONS (3)
  - Retinal tear [Unknown]
  - Retinal haemorrhage [Unknown]
  - Vitreous detachment [Unknown]

NARRATIVE: CASE EVENT DATE: 20240728
